FAERS Safety Report 10031893 (Version 1)
Quarter: 2014Q1

REPORT INFORMATION
  Report Type: Spontaneous
  Country: GB (occurrence: GB)
  Receive Date: 20140324
  Receipt Date: 20140324
  Transmission Date: 20141002
  Serious: Yes (Other)
  Sender: FDA-Public Use
  Company Number: GB-PFIZER INC-2014081887

PATIENT
  Age: 44 Year
  Sex: Female
  Weight: 120 kg

DRUGS (6)
  1. AMLODIPINE BESILATE [Suspect]
     Indication: HYPERTENSION
     Dosage: 5 MG, UNK
     Route: 048
     Dates: start: 201306, end: 201403
  2. BACLOFEN [Concomitant]
     Dosage: UNK
  3. GAVISCON ADVANCE [Concomitant]
     Dosage: UNK
  4. LANSOPRAZOLE [Concomitant]
     Dosage: UNK
  5. LOSARTAN POTASSIUM [Concomitant]
     Dosage: UNK
  6. MONTELUKAST [Concomitant]
     Dosage: UNK

REACTIONS (12)
  - Oedema [Unknown]
  - Local swelling [Unknown]
  - Joint swelling [Unknown]
  - Local swelling [Unknown]
  - Skin discolouration [Unknown]
  - Rash [Unknown]
  - Pain [Unknown]
  - Feeling hot [Unknown]
  - Discomfort [Unknown]
  - Mobility decreased [Unknown]
  - Paraesthesia [Unknown]
  - Feeling abnormal [Unknown]
